FAERS Safety Report 19024494 (Version 1)
Quarter: 2021Q1

REPORT INFORMATION
  Report Type: Report from Study
  Country: None (occurrence: CA)
  Receive Date: 20210317
  Receipt Date: 20210317
  Transmission Date: 20210420
  Serious: Yes (Other)
  Sender: FDA-Public Use
  Company Number: CA-ABBVIE-21K-028-3817984-00

PATIENT
  Age: 35 Year
  Sex: Female

DRUGS (1)
  1. HUMIRA [Suspect]
     Active Substance: ADALIMUMAB
     Indication: RHEUMATOID ARTHRITIS
     Route: 058
     Dates: start: 20150127

REACTIONS (5)
  - Loss of consciousness [Recovered/Resolved]
  - Oxygen saturation decreased [Not Recovered/Not Resolved]
  - Oxygen saturation abnormal [Unknown]
  - Palpitations [Unknown]
  - Heart rate abnormal [Unknown]

NARRATIVE: CASE EVENT DATE: 202103
